FAERS Safety Report 8793802 (Version 4)
Quarter: 2013Q1

REPORT INFORMATION
  Report Type: Report from Study
  Country: JP (occurrence: JP)
  Receive Date: 20120917
  Receipt Date: 20130102
  Transmission Date: 20140127
  Serious: Yes (Hospitalization)
  Sender: FDA-Public Use
  Company Number: JP-VERTEX PHARMACEUTICAL INC.-AE-2012-009785

PATIENT
  Age: 56 Year
  Sex: Male

DRUGS (20)
  1. VX-950 (TELAPREVIR) [Suspect]
     Indication: CHRONIC HEPATITIS C
     Dosage: 2250 MG, QD
     Route: 048
     Dates: start: 20120314, end: 20120427
  2. REBETOL [Suspect]
     Indication: CHRONIC HEPATITIS C
     Dosage: 1000 MG, QD
     Route: 048
     Dates: start: 20120314, end: 20120327
  3. REBETOL [Suspect]
     Dosage: 600 MG, QD
     Route: 048
     Dates: start: 20120328, end: 20120509
  4. REBETOL [Suspect]
     Dosage: 800 MG, QD
     Route: 048
     Dates: start: 20120510, end: 20120515
  5. REBETOL [Suspect]
     Dosage: 1000 MG, QD
     Route: 048
     Dates: start: 20120516, end: 20120828
  6. PEGINTRON                          /01543001/ [Suspect]
     Indication: CHRONIC HEPATITIS C
     Dosage: 1.5 ?G/KG, WEEK
     Route: 058
     Dates: start: 20120314, end: 20120822
  7. PREDNISOLONE [Suspect]
     Indication: ADVERSE EVENT
     Dosage: 40 MG, QD
     Route: 048
     Dates: start: 20120428, end: 20120504
  8. PREDNISOLONE [Suspect]
     Dosage: 30 MG, QD
     Route: 048
     Dates: start: 20120505, end: 20120509
  9. PREDNISOLONE [Suspect]
     Dosage: 20 MG, QD
     Route: 048
     Dates: start: 20120510, end: 20120515
  10. PREDNISOLONE [Suspect]
     Dosage: 10 MG, QD
     Route: 048
     Dates: start: 20120516, end: 20120522
  11. PREDNISOLONE [Suspect]
     Dosage: 5 MG, QD
     Route: 048
     Dates: start: 20120523, end: 20120529
  12. CELECOX [Suspect]
     Indication: PROPHYLAXIS
     Dosage: 200 MG, QD
     Route: 048
     Dates: start: 20120425, end: 20120427
  13. CELECOX [Suspect]
     Dosage: 200 MG, QD
     Route: 048
     Dates: start: 20120808, end: 20120810
  14. MAGMITT [Concomitant]
     Dosage: 1980 MG, QD
     Route: 048
     Dates: end: 20120417
  15. BAYASPIRIN [Concomitant]
     Dosage: 100 MG, QD
     Route: 048
  16. BLOPRESS [Concomitant]
     Dosage: 4 MG, QD
     Route: 048
  17. LOXONIN [Concomitant]
     Dosage: 180 MG, QD
     Route: 048
     Dates: start: 20120314, end: 20120330
  18. ACETAMINOPHEN [Concomitant]
     Dosage: 1.5 G, QD
     Route: 048
     Dates: start: 20120404, end: 20120424
  19. GLACTIV [Concomitant]
     Dosage: 50 MG, QD
     Route: 048
     Dates: start: 20120502
  20. TALION                             /01587402/ [Concomitant]
     Dosage: 20 MG, QD
     Route: 048

REACTIONS (1)
  - Erythema [Recovered/Resolved]
